FAERS Safety Report 6326330-4 (Version None)
Quarter: 2009Q3

REPORT INFORMATION
  Report Type: 
  Country: None (occurrence: None)
  Receive Date: 20090821
  Receipt Date: 20090811
  Transmission Date: 20100115
  Serious: Yes (Death)
  Sender: FDA-Public Use
  Company Number: GXKR2009US09108

PATIENT
  Age: 53 Year
  Sex: Female

DRUGS (6)
  1. CARISOPRODOL [Suspect]
     Dosage: 350 MG AT BEDTIME, UNKNOWN
  2. TRAMADOL (NGX)(TRAMADOL) UNKNOWN [Suspect]
     Dosage: 650 MG, TID
  3. XYREM [Suspect]
     Dosage: SOLUTION 500 MG/L,  TOTAL NIGHTLY DOSE 7.5G,
  4. GABAPENTIN [Concomitant]
  5. CETIRIZINE HCL [Concomitant]
  6. MODAFINIL [Concomitant]

REACTIONS (4)
  - ACCIDENTAL OVERDOSE [None]
  - DRUG INTERACTION [None]
  - DRUG TOXICITY [None]
  - UNRESPONSIVE TO STIMULI [None]
